FAERS Safety Report 10226230 (Version 1)
Quarter: 2014Q2

REPORT INFORMATION
  Report Type: Spontaneous
  Country: US (occurrence: US)
  Receive Date: 20140609
  Receipt Date: 20140609
  Transmission Date: 20141212
  Serious: Yes (Other)
  Sender: FDA-Public Use
  Company Number: US-ASTELLAS-2014US004351

PATIENT
  Sex: Male

DRUGS (1)
  1. XTANDI [Suspect]
     Indication: PROSTATE CANCER
     Route: 048
     Dates: start: 20131015

REACTIONS (6)
  - Oedema [Unknown]
  - Blood pressure increased [Unknown]
  - Asthenia [Unknown]
  - Weight increased [Unknown]
  - Flank pain [Unknown]
  - Blood count abnormal [Unknown]
